FAERS Safety Report 13316746 (Version 1)
Quarter: 2017Q1

REPORT INFORMATION
  Report Type: Spontaneous
  Country: FR (occurrence: FR)
  Receive Date: 20170310
  Receipt Date: 20170310
  Transmission Date: 20170428
  Serious: Yes (Hospitalization)
  Sender: FDA-Public Use
  Company Number: FR-ACCORD-048921

PATIENT
  Age: 57 Year
  Sex: Female

DRUGS (1)
  1. DOCETAXEL ACCORD [Suspect]
     Active Substance: DOCETAXEL
     Indication: BREAST CANCER
     Dosage: RECEIVED HER FIRST TREATMENT COURSE
     Route: 042
     Dates: start: 20170110, end: 20170110

REACTIONS (9)
  - Diarrhoea [Recovered/Resolved]
  - Skin depigmentation [Unknown]
  - Pyrexia [Recovered/Resolved with Sequelae]
  - Rectal haemorrhage [Recovering/Resolving]
  - Abdominal pain [Recovered/Resolved with Sequelae]
  - Aplasia [Unknown]
  - Palmar-plantar erythrodysaesthesia syndrome [Unknown]
  - Skin exfoliation [Unknown]
  - Onychalgia [Unknown]

NARRATIVE: CASE EVENT DATE: 201701
